FAERS Safety Report 25541427 (Version 1)
Quarter: 2025Q3

REPORT INFORMATION
  Report Type: Report from Study
  Country: CA (occurrence: CA)
  Receive Date: 20250711
  Receipt Date: 20250711
  Transmission Date: 20251020
  Serious: Yes (Other)
  Sender: ABBVIE
  Company Number: CA-ABBVIE-6360575

PATIENT
  Age: 44 Year
  Sex: Female
  Weight: 57 kg

DRUGS (4)
  1. SKYRIZI [Suspect]
     Active Substance: RISANKIZUMAB-RZAA
     Indication: Crohn^s disease
     Route: 042
  2. METAMUCIL [Concomitant]
     Active Substance: PLANTAGO SEED
  3. TRAMADOL [Concomitant]
     Active Substance: TRAMADOL
     Indication: Abdominal pain
  4. SERTRALINE [Suspect]
     Active Substance: SERTRALINE HYDROCHLORIDE
     Indication: Anxiety
     Route: 065

REACTIONS (11)
  - Ileostomy [Unknown]
  - Large intestinal stenosis [Unknown]
  - Abdominal pain [Unknown]
  - Feeling abnormal [Unknown]
  - Decreased appetite [Unknown]
  - Arthralgia [Unknown]
  - Anal fistula [Unknown]
  - Drain removal [Unknown]
  - Headache [Unknown]
  - Insomnia [Unknown]
  - Colectomy [Unknown]

NARRATIVE: CASE EVENT DATE: 20241201
